FAERS Safety Report 5843779-4 (Version None)
Quarter: 2008Q3

REPORT INFORMATION
  Report Type: 
  Country: None (occurrence: None)
  Receive Date: 20080813
  Receipt Date: 20080807
  Transmission Date: 20090109
  Serious: Yes (Hospitalization)
  Sender: FDA-Public Use
  Company Number: JP-ABBOTT-08P-087-0452546-00

PATIENT
  Sex: Female

DRUGS (5)
  1. VASOLAN [Suspect]
     Indication: MYOCARDIAL ISCHAEMIA
     Route: 048
     Dates: start: 20080401, end: 20080428
  2. BISOPROLOL FUMARATE [Suspect]
     Indication: DRUG USE FOR UNKNOWN INDICATION
     Route: 048
     Dates: start: 20080331, end: 20080428
  3. MOSAPRIDE CITRATE [Concomitant]
     Indication: REFLUX OESOPHAGITIS
     Route: 048
     Dates: start: 20080405, end: 20080428
  4. FAMOTIDINE [Concomitant]
     Indication: REFLUX OESOPHAGITIS
     Route: 048
     Dates: start: 20080405, end: 20080428
  5. ETIZOLAM [Concomitant]
     Indication: ANXIETY DISORDER
     Route: 048
     Dates: start: 20080324, end: 20080428

REACTIONS (2)
  - DRUG ERUPTION [None]
  - ERYTHEMA [None]
